FAERS Safety Report 22853397 (Version 2)
Quarter: 2023Q4

REPORT INFORMATION
  Report Type: Spontaneous
  Country: US (occurrence: US)
  Receive Date: 20230823
  Receipt Date: 20231204
  Transmission Date: 20240110
  Serious: Yes (Life-Threatening, Hospitalization, Other)
  Sender: FDA-Public Use
  Company Number: US-SERVIER-S23009240

PATIENT

DRUGS (6)
  1. ASPARLAS [Suspect]
     Active Substance: CALASPARGASE PEGOL-MKNL
     Indication: T-cell type acute leukaemia
     Dosage: 2500 U, 1-2 DOSES
     Route: 042
     Dates: start: 20230312
  2. ASPARLAS [Suspect]
     Active Substance: CALASPARGASE PEGOL-MKNL
     Dosage: 1725 U
     Route: 042
     Dates: start: 20230804, end: 20230804
  3. DEXAMETHASONE [Concomitant]
     Active Substance: DEXAMETHASONE
     Indication: T-cell type acute leukaemia
     Dosage: 3.5 UNK, QD
     Route: 048
     Dates: start: 202307
  4. FAMOTIDINE [Concomitant]
     Active Substance: FAMOTIDINE
     Indication: T-cell type acute leukaemia
     Dosage: 8 MG, QD
     Route: 048
     Dates: start: 202303
  5. MERCAPTOPURINE [Concomitant]
     Active Substance: MERCAPTOPURINE
     Indication: T-cell type acute leukaemia
     Dosage: 40 MG, QD
     Route: 048
     Dates: start: 202304
  6. SULFAMETHOXAZOLE AND TRIMETHOPRIM [Concomitant]
     Active Substance: SULFAMETHOXAZOLE\TRIMETHOPRIM
     Indication: T-cell type acute leukaemia
     Dosage: (480-96)MG, QD
     Route: 048
     Dates: start: 202304

REACTIONS (1)
  - Anaphylactic reaction [Recovered/Resolved]

NARRATIVE: CASE EVENT DATE: 20230804
